FAERS Safety Report 17354784 (Version 1)
Quarter: 2020Q1

REPORT INFORMATION
  Report Type: Spontaneous
  Country: RU (occurrence: RU)
  Receive Date: 20200131
  Receipt Date: 20200131
  Transmission Date: 20200409
  Serious: No
  Sender: FDA-Public Use
  Company Number: NVSC2020RU024350

PATIENT
  Age: 9 Year
  Sex: Male

DRUGS (1)
  1. TERBINAFINE. [Suspect]
     Active Substance: TERBINAFINE
     Indication: FUNGAL SKIN INFECTION
     Dosage: UNK
     Route: 065

REACTIONS (4)
  - Skin lesion [Recovering/Resolving]
  - Pain of skin [Recovering/Resolving]
  - Condition aggravated [Recovering/Resolving]
  - Medication error [Unknown]
